FAERS Safety Report 7675207-0 (Version None)
Quarter: 2011Q3

REPORT INFORMATION
  Report Type: 
  Country: None (occurrence: None)
  Receive Date: 20110810
  Receipt Date: 20110810
  Transmission Date: 20111222
  Serious: Yes (Other)
  Sender: FDA-Public Use
  Company Number: None

PATIENT
  Age: 48 Year
  Sex: Male
  Weight: 113.39 kg

DRUGS (1)
  1. CLONIDINE [Suspect]
     Indication: HYPERTENSION
     Dosage: 0.1MG
     Route: 048
     Dates: start: 20110805, end: 20110805

REACTIONS (11)
  - WHITE BLOOD CELL COUNT INCREASED [None]
  - PLEURITIC PAIN [None]
  - ANXIETY [None]
  - BLOOD URINE PRESENT [None]
  - PAIN [None]
  - AGITATION [None]
  - HALLUCINATION, AUDITORY [None]
  - MENTAL STATUS CHANGES [None]
  - PARANOIA [None]
  - LUNG CONSOLIDATION [None]
  - PYREXIA [None]
